FAERS Safety Report 9920055 (Version 2)
Quarter: 2014Q1

REPORT INFORMATION
  Report Type: Report from Study
  Country: JP (occurrence: JP)
  Receive Date: 20140224
  Receipt Date: 20140306
  Transmission Date: 20141002
  Serious: Yes (Other)
  Sender: FDA-Public Use
  Company Number: JP-B.I. PHARMACEUTICALS,INC./RIDGEFIELD-2014-BI-08166GD

PATIENT
  Sex: 0

DRUGS (3)
  1. PRADAXA [Suspect]
     Indication: PROPHYLAXIS
     Route: 065
  2. PRADAXA [Suspect]
     Indication: CEREBRAL INFARCTION
  3. PRADAXA [Suspect]
     Indication: ATRIAL FIBRILLATION

REACTIONS (1)
  - Cerebral infarction [Unknown]
